FAERS Safety Report 20642615 (Version 2)
Quarter: 2022Q2

REPORT INFORMATION
  Report Type: Spontaneous
  Country: US (occurrence: US)
  Receive Date: 20220328
  Receipt Date: 20220503
  Transmission Date: 20220720
  Serious: No
  Sender: FDA-Public Use
  Company Number: US-BAYER-2022A044303

PATIENT
  Age: 25 Year
  Sex: Female
  Weight: 80.272 kg

DRUGS (1)
  1. KYLEENA [Suspect]
     Active Substance: LEVONORGESTREL
     Indication: Intra-uterine contraceptive device insertion
     Dosage: 17.5?G/DAY
     Route: 015
     Dates: start: 20210408, end: 20211116

REACTIONS (2)
  - Heavy menstrual bleeding [None]
  - Device expulsion [None]

NARRATIVE: CASE EVENT DATE: 20210101
